FAERS Safety Report 14728437 (Version 3)
Quarter: 2018Q2

REPORT INFORMATION
  Report Type: Spontaneous
  Country: CZ (occurrence: CZ)
  Receive Date: 20180406
  Receipt Date: 20180625
  Transmission Date: 20180711
  Serious: Yes (Hospitalization)
  Sender: FDA-Public Use
  Company Number: CZ-PFIZER INC-2018136927

PATIENT
  Age: 69 Year
  Sex: Female
  Weight: 66 kg

DRUGS (1)
  1. TYGACIL [Suspect]
     Active Substance: TIGECYCLINE
     Indication: POSTOPERATIVE WOUND INFECTION
     Dosage: 100 MG, EVERY 12 HOURS
     Route: 042
     Dates: start: 20180204, end: 20180209

REACTIONS (1)
  - Liver function test increased [Recovering/Resolving]

NARRATIVE: CASE EVENT DATE: 20180210
